FAERS Safety Report 6359357-7 (Version None)
Quarter: 2009Q3

REPORT INFORMATION
  Report Type: 
  Country: None (occurrence: None)
  Receive Date: 20090917
  Receipt Date: 20090902
  Transmission Date: 20100115
  Serious: Yes (Hospitalization, Other)
  Sender: FDA-Public Use
  Company Number: US-BRISTOL-MYERS SQUIBB COMPANY-13089156

PATIENT
  Age: 40 Year
  Sex: Male

DRUGS (15)
  1. BLINDED: IPILIMUMAB [Suspect]
     Indication: MALIGNANT MELANOMA
     Dosage: 1ST DOSE ON 27APR05.2ND DOSE 18MAY05.REMOVED FRM STUDY ON 27JUN05.
     Route: 042
     Dates: start: 20050608, end: 20050608
  2. BLINDED: BMS734019 (MDX 1379) [Suspect]
     Indication: MALIGNANT MELANOMA
     Dosage: FIRST DOSE ON 27-APR-05.  SECOND DOSE ON 18-MAY-05. REMOVED FROM STUDY ON 27-JUN-05.
     Route: 058
     Dates: start: 20050608, end: 20050608
  3. CISPLATIN [Suspect]
  4. PROLEUKIN [Suspect]
  5. TYLENOL (CAPLET) [Concomitant]
     Dates: start: 20050427
  6. PANTOPRAZOLE SODIUM [Concomitant]
  7. SUCRALFATE [Concomitant]
  8. CETYLPYRIDINIUM CHLORIDE [Concomitant]
  9. CETIRIZINE HCL [Concomitant]
  10. HEPARIN [Concomitant]
  11. HYDROXYZINE [Concomitant]
  12. LORAZEPAM [Concomitant]
  13. NEUPOGEN [Concomitant]
  14. HYDROMORPHONE [Concomitant]
  15. ZAROXOLYN [Concomitant]

REACTIONS (6)
  - ASCITES [None]
  - ILEUS [None]
  - MALIGNANT NEOPLASM PROGRESSION [None]
  - OEDEMA [None]
  - PYREXIA [None]
  - RENAL TUBULAR NECROSIS [None]
